FAERS Safety Report 25661052 (Version 1)
Quarter: 2025Q3

REPORT INFORMATION
  Report Type: Spontaneous
  Country: EU (occurrence: EU)
  Receive Date: 20250808
  Receipt Date: 20250808
  Transmission Date: 20251021
  Serious: Yes (Life-Threatening, Hospitalization, Other)
  Sender: TEVA
  Company Number: None

PATIENT
  Age: 53 Year
  Sex: Female

DRUGS (2)
  1. CARBOPLATIN [Suspect]
     Active Substance: CARBOPLATIN
     Indication: Bladder cancer stage IV
     Route: 042
     Dates: start: 20250410, end: 20250410
  2. GEMCITABINE [Suspect]
     Active Substance: GEMCITABINE
     Indication: Product used for unknown indication
     Route: 042
     Dates: start: 20250410, end: 20250417

REACTIONS (4)
  - Thrombocytopenia [Recovering/Resolving]
  - Leukopenia [Recovering/Resolving]
  - Bronchospasm [Recovered/Resolved]
  - Pneumonia [Recovering/Resolving]

NARRATIVE: CASE EVENT DATE: 20250424
